FAERS Safety Report 21642845 (Version 1)
Quarter: 2022Q4

REPORT INFORMATION
  Report Type: Report from Study
  Country: US (occurrence: US)
  Receive Date: 20221125
  Receipt Date: 20221125
  Transmission Date: 20230113
  Serious: No
  Sender: FDA-Public Use
  Company Number: US-ABBVIE-4214213

PATIENT
  Sex: Male

DRUGS (8)
  1. IMBRUVICA [Suspect]
     Active Substance: IBRUTINIB
     Indication: Chronic lymphocytic leukaemia
     Dosage: TIME INTERVAL: 0.33333333 DAYS
     Route: 048
  2. Adderall Oral Tablet 30 MG [Concomitant]
     Indication: Product used for unknown indication
     Dosage: 30 MG
     Route: 048
  3. Ativan Oral Tablet 0.5 MG [Concomitant]
     Indication: Product used for unknown indication
     Dosage: 0.5MG
     Route: 048
  4. CeleXA Oral Tablet 20 MG [Concomitant]
     Indication: Product used for unknown indication
     Dosage: 20 MG
     Route: 048
  5. Phenergan Injection Solution 50 MG/ ML [Concomitant]
     Indication: Product used for unknown indication
     Dosage: INJECTION SOLUTION 50 MG/ ML
  6. Carvedilol Oral Tablet 3.125 MG [Concomitant]
     Indication: Product used for unknown indication
     Dosage: 3.125 MG
     Route: 048
  7. Tamiflu Oral Capsule 75 MG [Concomitant]
     Indication: Product used for unknown indication
     Dosage: 75 MG
     Route: 048
  8. Zofran Oral Tablet 8 MG [Concomitant]
     Indication: Product used for unknown indication
     Dosage: 8 MG
     Route: 048

REACTIONS (1)
  - Diarrhoea [Not Recovered/Not Resolved]
